FAERS Safety Report 21766875 (Version 3)
Quarter: 2023Q1

REPORT INFORMATION
  Report Type: Spontaneous
  Country: US (occurrence: US)
  Receive Date: 20221222
  Receipt Date: 20230202
  Transmission Date: 20230418
  Serious: No
  Sender: FDA-Public Use
  Company Number: US-INCYTE CORPORATION-2022IN012296

PATIENT

DRUGS (2)
  1. JAKAFI [Suspect]
     Active Substance: RUXOLITINIB
     Indication: Myelofibrosis
     Dosage: 20 MILLIGRAM, BID
     Route: 048
     Dates: start: 202211
  2. JAKAFI [Suspect]
     Active Substance: RUXOLITINIB
     Dosage: 15 MILLIGRAM, BID
     Route: 048
     Dates: start: 202301

REACTIONS (9)
  - Superficial vein thrombosis [Recovering/Resolving]
  - Blister [Unknown]
  - Chills [Unknown]
  - Feeling abnormal [Unknown]
  - Low density lipoprotein increased [Unknown]
  - Full blood count abnormal [Unknown]
  - Low density lipoprotein abnormal [Unknown]
  - Ecchymosis [Unknown]
  - Headache [Unknown]
